FAERS Safety Report 19889966 (Version 1)
Quarter: 2021Q3

REPORT INFORMATION
  Report Type: Spontaneous
  Country: US (occurrence: US)
  Receive Date: 20210927
  Receipt Date: 20210927
  Transmission Date: 20211014
  Serious: Yes (Disabling)
  Sender: FDA-Public Use
  Company Number: None

PATIENT

DRUGS (1)
  1. INTENT.SIVE ETHERIC GOLDEN PAIN RELIEF OIL [HERBALS] [Suspect]
     Active Substance: HERBALS
     Indication: DYSHIDROTIC ECZEMA
     Dates: start: 20210902, end: 20210903

REACTIONS (3)
  - Chemical burn [None]
  - Application site burn [None]
  - Application site pain [None]

NARRATIVE: CASE EVENT DATE: 20210902
